FAERS Safety Report 19756027 (Version 1)
Quarter: 2021Q3

REPORT INFORMATION
  Report Type: Spontaneous
  Country: US (occurrence: US)
  Receive Date: 20210827
  Receipt Date: 20210827
  Transmission Date: 20211014
  Serious: No
  Sender: FDA-Public Use
  Company Number: US-BEH-2021135319

PATIENT
  Age: 49 Year
  Sex: Female

DRUGS (8)
  1. ACETAMINOPHEN. [Concomitant]
     Active Substance: ACETAMINOPHEN
  2. BUSPIRONE [Concomitant]
     Active Substance: BUSPIRONE HYDROCHLORIDE
  3. EPINEPHRINE. [Concomitant]
     Active Substance: EPINEPHRINE
  4. ESTRADIOL. [Concomitant]
     Active Substance: ESTRADIOL
  5. PRIVIGEN [Suspect]
     Active Substance: HUMAN IMMUNOGLOBULIN G
     Indication: WHITE BLOOD CELL DISORDER
     Dosage: 40 GRAM, QMT
     Route: 042
     Dates: start: 20210319
  6. BUPROPION. [Concomitant]
     Active Substance: BUPROPION
  7. LIDOCAINE. [Concomitant]
     Active Substance: LIDOCAINE
  8. TRAMADOL HCL [Concomitant]
     Active Substance: TRAMADOL HYDROCHLORIDE

REACTIONS (5)
  - Nasopharyngitis [Not Recovered/Not Resolved]
  - No adverse event [Unknown]
  - Cough [Not Recovered/Not Resolved]
  - Off label use [Unknown]
  - Pyrexia [Not Recovered/Not Resolved]

NARRATIVE: CASE EVENT DATE: 20210818
